FAERS Safety Report 15480883 (Version 1)
Quarter: 2018Q4

REPORT INFORMATION
  Report Type: Spontaneous
  Country: IN (occurrence: IN)
  Receive Date: 20181010
  Receipt Date: 20181010
  Transmission Date: 20190205
  Serious: Yes (Death, Other)
  Sender: FDA-Public Use
  Company Number: IN-ROCHE-2185862

PATIENT
  Age: 43 Year
  Sex: Female

DRUGS (2)
  1. KADCYLA [Suspect]
     Active Substance: ADO-TRASTUZUMAB EMTANSINE
     Indication: BREAST CANCER
     Dosage: DOSE 260 MG WAS RECEIVED FOR 3 CYCLES AND DOSE WAS REDUCED TO 200 MG.
     Route: 042
     Dates: start: 20180526
  2. KADCYLA [Suspect]
     Active Substance: ADO-TRASTUZUMAB EMTANSINE
     Dosage: DOSE 260 MG WAS RECEIVED FOR 3 CYCLES AND DOSE WAS REDUCED TO 200 MG.
     Route: 042

REACTIONS (4)
  - Weight decreased [Unknown]
  - Cough [Unknown]
  - Cardiovascular disorder [Fatal]
  - Mouth haemorrhage [Unknown]
